FAERS Safety Report 10651491 (Version 1)
Quarter: 2014Q4

REPORT INFORMATION
  Report Type: Spontaneous
  Country: AU (occurrence: AU)
  Receive Date: 20141215
  Receipt Date: 20141215
  Transmission Date: 20150529
  Serious: Yes (Hospitalization)
  Sender: FDA-Public Use
  Company Number: AU-PERRIGO-14AU011952

PATIENT
  Age: 92 Year
  Sex: Female

DRUGS (1)
  1. GRISEOFULVIN RX 25 MG/ML USP 6K8 [Suspect]
     Active Substance: GRISEOFULVIN
     Indication: ONYCHOMYCOSIS
     Dosage: UNK, UNK
     Route: 065

REACTIONS (1)
  - Erythema multiforme [Recovered/Resolved]
